FAERS Safety Report 8427854-6 (Version None)
Quarter: 2012Q2

REPORT INFORMATION
  Report Type: 
  Country: None (occurrence: None)
  Receive Date: 20120611
  Receipt Date: 20120528
  Transmission Date: 20120825
  Serious: Yes (Death)
  Sender: FDA-Public Use
  Company Number: DE-TEVA-340530GER

PATIENT
  Age: 42 Year
  Sex: Female

DRUGS (2)
  1. AZATHIOPRINE [Suspect]
     Indication: IMMUNOSUPPRESSANT DRUG THERAPY
     Dosage: 50 MILLIGRAM;
     Route: 065
  2. CYCLOSPORINE [Suspect]
     Indication: IMMUNOSUPPRESSANT DRUG THERAPY
     Dosage: 300 MILLIGRAM;
     Route: 065

REACTIONS (2)
  - PLASMABLASTIC LYMPHOMA [None]
  - POST TRANSPLANT LYMPHOPROLIFERATIVE DISORDER [None]
